FAERS Safety Report 6328811-6 (Version None)
Quarter: 2009Q3

REPORT INFORMATION
  Report Type: 
  Country: None (occurrence: None)
  Receive Date: 20090826
  Receipt Date: 20090819
  Transmission Date: 20100115
  Serious: Yes (Hospitalization)
  Sender: FDA-Public Use
  Company Number: GB-BAYER-200929302GPV

PATIENT
  Age: 75 Year
  Sex: Female

DRUGS (1)
  1. MAGNEVIST [Suspect]
     Indication: VASCULAR TEST
     Dosage: AS USED: 40 ML
     Dates: start: 20090818, end: 20090818

REACTIONS (2)
  - DYSPNOEA [None]
  - RESPIRATORY TRACT CONGESTION [None]
